FAERS Safety Report 4356620-6 (Version None)
Quarter: 2004Q2

REPORT INFORMATION
  Report Type: 
  Country: None (occurrence: None)
  Receive Date: 20040507
  Receipt Date: 20040427
  Transmission Date: 20050107
  Serious: Yes (Hospitalization)
  Sender: FDA-Public Use
  Company Number: JP_040403035

PATIENT
  Age: 48 Year
  Sex: Male

DRUGS (4)
  1. ZYPREXA [Suspect]
     Indication: SCHIZOPHRENIA
     Dosage: 15 MG DAY
     Dates: start: 20020529
  2. SILECE (FLUNITRAZEPAM) [Concomitant]
  3. CHLORPROMAZINE HCL [Concomitant]
  4. BIPERIDEN HYDROCHLORIDE TAB [Concomitant]

REACTIONS (1)
  - HAEMOLYTIC ANAEMIA [None]
